FAERS Safety Report 22395251 (Version 1)
Quarter: 2023Q2

REPORT INFORMATION
  Report Type: Spontaneous
  Country: US (occurrence: None)
  Receive Date: 20230531
  Receipt Date: 20230531
  Transmission Date: 20230722
  Serious: No
  Sender: FDA-Public Use
  Company Number: None

PATIENT
  Sex: Male

DRUGS (8)
  1. VOTRIENT [Suspect]
     Active Substance: PAZOPANIB HYDROCHLORIDE
     Indication: Soft tissue sarcoma
     Dosage: FREQUENCY : DAILY;?
     Route: 048
  2. METOPROLOL [Concomitant]
     Active Substance: METOPROLOL
  3. FINASTERIDE [Concomitant]
     Active Substance: FINASTERIDE
  4. TAMSULOSIN [Concomitant]
     Active Substance: TAMSULOSIN
  5. ASPIRIN [Concomitant]
     Active Substance: ASPIRIN
  6. DAILY MULTI VITAMIN [Concomitant]
  7. MORPHINE [Concomitant]
     Active Substance: MORPHINE
  8. LENVIMA [Concomitant]
     Active Substance: LENVATINIB

REACTIONS (2)
  - Nonspecific reaction [None]
  - Therapy cessation [None]
